FAERS Safety Report 25141016 (Version 1)
Quarter: 2025Q1

REPORT INFORMATION
  Report Type: Other
  Country: CA (occurrence: CA)
  Receive Date: 20250331
  Receipt Date: 20250331
  Transmission Date: 20250409
  Serious: No
  Sender: TOLMAR
  Company Number: CA-20250312-626852

PATIENT
  Sex: Male

DRUGS (2)
  1. ELIGARD [Suspect]
     Active Substance: LEUPROLIDE ACETATE
     Indication: Prostate cancer
     Dosage: 45 MG Q 6 MONTHS
     Route: 058
     Dates: start: 20240925
  2. ELIGARD [Suspect]
     Active Substance: LEUPROLIDE ACETATE
     Dosage: 45 MG Q 6 MONTHS
     Route: 058
     Dates: start: 20250312

REACTIONS (2)
  - Fatigue [Unknown]
  - Hot flush [Unknown]
